FAERS Safety Report 23723412 (Version 1)
Quarter: 2024Q2

REPORT INFORMATION
  Report Type: Spontaneous
  Country: US (occurrence: US)
  Receive Date: 20240409
  Receipt Date: 20240409
  Transmission Date: 20240716
  Serious: Yes (Other)
  Sender: FDA-Public Use
  Company Number: US-SA-SAC20240408000086

PATIENT
  Sex: Female

DRUGS (15)
  1. KEVZARA [Suspect]
     Active Substance: SARILUMAB
     Indication: Rheumatoid arthritis
     Dosage: 200 MG, QOW
     Route: 058
  2. ATORVASTATIN [Concomitant]
     Active Substance: ATORVASTATIN
  3. CICLOPIROX [Concomitant]
     Active Substance: CICLOPIROX\TOCOPHEROL
  4. ESCITALOPRAM [Concomitant]
     Active Substance: ESCITALOPRAM OXALATE
  5. LORAZEPAM [Concomitant]
     Active Substance: LORAZEPAM
  6. NIFEDIPINE [Concomitant]
     Active Substance: NIFEDIPINE
  7. ONDANSETRON [Concomitant]
     Active Substance: ONDANSETRON
  8. PANTOPRAZOLE [Concomitant]
     Active Substance: PANTOPRAZOLE
  9. PREDNISONE [Concomitant]
     Active Substance: PREDNISONE
  10. SUCRALFATE [Concomitant]
     Active Substance: SUCRALFATE
  11. TRAZODONE [Concomitant]
     Active Substance: TRAZODONE HYDROCHLORIDE
  12. DIVALPROEX SODIUM [Concomitant]
     Active Substance: DIVALPROEX SODIUM
  13. FLUDROCORTISONE [Concomitant]
     Active Substance: FLUDROCORTISONE
  14. CHLORTHALIDONE [Concomitant]
     Active Substance: CHLORTHALIDONE
  15. KLOR-CON [Concomitant]
     Active Substance: POTASSIUM CHLORIDE

REACTIONS (6)
  - Seizure [Unknown]
  - Depression [Unknown]
  - Tremor [Unknown]
  - Fatigue [Unknown]
  - Disturbance in attention [Unknown]
  - Somnolence [Unknown]
